FAERS Safety Report 8144147-5 (Version None)
Quarter: 2012Q1

REPORT INFORMATION
  Report Type: 
  Country: None (occurrence: None)
  Receive Date: 20120217
  Receipt Date: 20120214
  Transmission Date: 20120608
  Serious: No
  Sender: FDA-Public Use
  Company Number: US-PFIZER INC-2012040821

PATIENT
  Sex: Female
  Weight: 67.12 kg

DRUGS (4)
  1. LYRICA [Suspect]
     Indication: NEUROPATHY PERIPHERAL
     Dosage: 300 MG, 2X/DAY
     Route: 048
     Dates: start: 20060101
  2. ACCUPRIL [Concomitant]
     Indication: BLOOD PRESSURE ABNORMAL
     Dosage: DAILY
  3. LISINOPRIL AND HYDROCHLOROTHIAZIDE [Concomitant]
     Indication: BLOOD PRESSURE ABNORMAL
     Dosage: 20/12.5 MG, DAILY
  4. TOPROL-XL [Concomitant]
     Indication: BLOOD PRESSURE ABNORMAL
     Dosage: 100 MG, DAILY

REACTIONS (2)
  - NASAL CONGESTION [None]
  - NASOPHARYNGITIS [None]
